FAERS Safety Report 4919022-7 (Version None)
Quarter: 2006Q1

REPORT INFORMATION
  Report Type: 
  Country: None (occurrence: None)
  Receive Date: 20060215
  Receipt Date: 20060208
  Transmission Date: 20060701
  Serious: Yes (Other)
  Sender: FDA-Public Use
  Company Number: 200512676GDS

PATIENT
  Age: 75 Year
  Sex: Male

DRUGS (7)
  1. ACARBOSE [Suspect]
     Indication: DIABETES MELLITUS
  2. METFORMIN [Suspect]
     Indication: DIABETES MELLITUS
  3. ACTOS [Concomitant]
  4. AMARYL [Concomitant]
  5. DIABETA [Concomitant]
  6. LOPRESSOR [Concomitant]
  7. HUMULIN N [Suspect]
     Indication: DIABETES MELLITUS
     Dates: start: 20040801, end: 20041001

REACTIONS (7)
  - ABDOMINAL DISTENSION [None]
  - BLOOD PRESSURE DECREASED [None]
  - CONFUSIONAL STATE [None]
  - DIZZINESS [None]
  - DRUG ADMINISTRATION ERROR [None]
  - FLATULENCE [None]
  - HYPERGLYCAEMIA [None]
